FAERS Safety Report 6641784-1 (Version None)
Quarter: 2010Q1

REPORT INFORMATION
  Report Type: 
  Country: None (occurrence: None)
  Receive Date: 20100316
  Receipt Date: 20100303
  Transmission Date: 20100710
  Serious: Yes (Death, Hospitalization)
  Sender: FDA-Public Use
  Company Number: 2010AC000166

PATIENT
  Age: 16 Year
  Sex: Male
  Weight: 43.0917 kg

DRUGS (26)
  1. DIGOXIN [Suspect]
     Dosage: .25 MG, QD, PO
     Route: 048
  2. DIGOXIN [Suspect]
     Dosage: 0.25 MG, PO
     Route: 048
     Dates: start: 19840801, end: 20080201
  3. DIGOXIN [Suspect]
     Dosage: .125 MG, BID, PO
     Route: 048
     Dates: start: 19720924, end: 19721012
  4. COUMADIN [Concomitant]
  5. COREG [Concomitant]
  6. LASIX [Concomitant]
  7. LISINOPRIL [Concomitant]
  8. SPIRONOLACTONE [Concomitant]
  9. CARVEDILOL [Concomitant]
  10. ENOXAPARIN SODIUM [Concomitant]
  11. AZITHROMYCIN [Concomitant]
  12. LEVAQUIN [Concomitant]
  13. LOVENOX [Concomitant]
  14. VANCOMYCIN [Concomitant]
  15. NAFCILLIN [Concomitant]
  16. GENTAMICIN [Concomitant]
  17. PEPCID [Concomitant]
  18. PHENERGAN HCL [Concomitant]
  19. LORTAB [Concomitant]
  20. OXYGEN [Concomitant]
  21. LEDERCILLIN [Concomitant]
  22. LEVSIN [Concomitant]
  23. ACCUPRIL [Concomitant]
  24. ASPIRIN [Concomitant]
  25. HEPARIN [Concomitant]
  26. FUROSEMIDE [Concomitant]

REACTIONS (54)
  - ABDOMINAL TENDERNESS [None]
  - AORTIC VALVE INCOMPETENCE [None]
  - ASTHENIA [None]
  - ATRIAL FIBRILLATION [None]
  - BACK PAIN [None]
  - BACTERIURIA [None]
  - BLOOD BILIRUBIN INCREASED [None]
  - BLOOD PRESSURE DECREASED [None]
  - CARDIAC FAILURE CONGESTIVE [None]
  - CARDIAC MURMUR [None]
  - CARDIOMEGALY [None]
  - CHEST PAIN [None]
  - COAGULOPATHY [None]
  - DECREASED APPETITE [None]
  - DIARRHOEA [None]
  - DILATATION VENTRICULAR [None]
  - DYSPNOEA [None]
  - DYSURIA [None]
  - EJECTION FRACTION DECREASED [None]
  - FATIGUE [None]
  - GAIT DISTURBANCE [None]
  - HAEMATURIA [None]
  - HAEMOPTYSIS [None]
  - HYPERHIDROSIS [None]
  - HYPONATRAEMIA [None]
  - HYPOVOLAEMIA [None]
  - INCORRECT DOSE ADMINISTERED [None]
  - INCREASED APPETITE [None]
  - LEFT VENTRICULAR HYPERTROPHY [None]
  - MALNUTRITION [None]
  - MITRAL VALVE INCOMPETENCE [None]
  - MYALGIA [None]
  - NAUSEA [None]
  - PALLOR [None]
  - PATHOGEN RESISTANCE [None]
  - PLATELET COUNT DECREASED [None]
  - POLYCYTHAEMIA [None]
  - PRODUCTIVE COUGH [None]
  - PROTEINURIA [None]
  - PULMONARY OEDEMA [None]
  - PULMONARY VALVE STENOSIS [None]
  - RENAL FAILURE [None]
  - RESPIRATORY DISTRESS [None]
  - RHINORRHOEA [None]
  - STAPHYLOCOCCAL BACTERAEMIA [None]
  - SUPRAVENTRICULAR EXTRASYSTOLES [None]
  - TACHYCARDIA [None]
  - THERAPEUTIC AGENT TOXICITY [None]
  - THIRST [None]
  - URINARY CASTS PRESENT [None]
  - VENTRICULAR EXTRASYSTOLES [None]
  - VOMITING [None]
  - WEIGHT INCREASED [None]
  - WHITE BLOOD CELLS URINE POSITIVE [None]
